FAERS Safety Report 24667529 (Version 1)
Quarter: 2024Q4

REPORT INFORMATION
  Report Type: Spontaneous
  Country: FR (occurrence: FR)
  Receive Date: 20241126
  Receipt Date: 20241126
  Transmission Date: 20250115
  Serious: Yes (Death, Other)
  Sender: JOHNSON AND JOHNSON
  Company Number: FR-JNJFOC-20241156784

PATIENT
  Sex: Female
  Weight: 64 kg

DRUGS (1)
  1. TECVAYLI [Suspect]
     Active Substance: TECLISTAMAB-CQYV
     Indication: Plasma cell myeloma
     Dates: start: 20231003, end: 20240429

REACTIONS (3)
  - Plasma cell myeloma [Fatal]
  - Metastatic malignant melanoma [Unknown]
  - Inappropriate schedule of product administration [Unknown]
